FAERS Safety Report 4447398-6 (Version None)
Quarter: 2004Q3

REPORT INFORMATION
  Report Type: 
  Country: None (occurrence: None)
  Receive Date: 20040823
  Receipt Date: 20040714
  Transmission Date: 20050211
  Serious: Yes (Other)
  Sender: FDA-Public Use
  Company Number: PHEH2004US06648

PATIENT
  Age: 42 Year
  Sex: Female
  Weight: 60.5 kg

DRUGS (5)
  1. ZELNORM [Suspect]
     Indication: IRRITABLE BOWEL SYNDROME
     Dosage: 6 MG BID ORAL
     Route: 048
  2. RHINOCORT [Concomitant]
  3. METAMUCIL ^SEARLE^ (PSYLLIUM HYDROPHILLIC) [Concomitant]
  4. STOOL SOFTNER [Concomitant]
  5. EXCEDRIN (MIGRAINE) [Concomitant]

REACTIONS (1)
  - ASTHMA [None]
